FAERS Safety Report 6326665-5 (Version None)
Quarter: 2009Q3

REPORT INFORMATION
  Report Type: 
  Country: None (occurrence: None)
  Receive Date: 20090825
  Receipt Date: 20090812
  Transmission Date: 20100115
  Serious: Yes (Other)
  Sender: FDA-Public Use
  Company Number: GB-PFIZER INC-2008071110

PATIENT

DRUGS (9)
  1. CHAMPIX [Suspect]
     Indication: SMOKING CESSATION THERAPY
     Dosage: UNK
     Route: 064
     Dates: start: 20080512, end: 20080731
  2. MORPHINE [Concomitant]
     Dosage: UNK
  3. DICLOFENAC [Concomitant]
     Dosage: UNK
  4. PARACETAMOL [Concomitant]
     Dosage: EVERY 4 TO 6 HOURS
  5. CODEINE [Concomitant]
     Dosage: EVERY 4 TO 6 HOURS
  6. DIHYDROCODEINE [Concomitant]
  7. DIAZEPAM [Concomitant]
  8. SENNA [Concomitant]
  9. NULYTELY [Concomitant]

REACTIONS (2)
  - DRUG EXPOSURE DURING PREGNANCY [None]
  - HORNER'S SYNDROME [None]
